FAERS Safety Report 7281757 (Version 2)
Quarter: 2012Q4

REPORT INFORMATION
  Report Type: Report from Study
  Country: DE (occurrence: DE)
  Receive Date: 20100217
  Receipt Date: 20121019
  Transmission Date: 20130627
  Serious: Yes (Hospitalization)
  Sender: FDA-Public Use
  Company Number: DE-SANOFI-AVENTIS-2010SA007388

PATIENT
  Age: 58 Year
  Sex: Male
  Weight: 51.8 kg

DRUGS (12)
  1. ELOXATIN [Suspect]
     Indication: RECTAL CANCER
     Route: 041
     Dates: start: 20090803, end: 20090803
  2. ELOXATIN [Suspect]
     Indication: RECTAL CANCER
     Route: 041
     Dates: start: 20091229, end: 20091229
  3. ELOXATIN [Suspect]
     Indication: RECTAL CANCER
     Route: 041
     Dates: start: 20100120, end: 20100120
  4. XELODA [Suspect]
     Indication: RECTAL CANCER
     Route: 048
     Dates: start: 20090803, end: 20090817
  5. XELODA [Suspect]
     Indication: RECTAL CANCER
     Route: 048
     Dates: start: 20091229, end: 20100112
  6. XELODA [Suspect]
     Indication: RECTAL CANCER
     Route: 048
     Dates: start: 20100120, end: 20100120
  7. OXYGESIC [Concomitant]
     Indication: DRUG USE FOR UNKNOWN INDICATION
  8. FERRO-FOLSAN [Concomitant]
     Indication: HEMOGLOBIN DECREASED
     Dates: start: 20091219
  9. PERENTEROL [Concomitant]
     Route: 048
     Dates: start: 20100112
  10. POTASSIUM CITRATE [Concomitant]
     Route: 048
     Dates: start: 20100120
  11. POTASSIUM CARBONATE [Concomitant]
     Route: 042
     Dates: start: 20100120, end: 20100121
  12. ESOMEPRAZOL [Concomitant]
     Route: 048
     Dates: start: 20100120, end: 20100126

REACTIONS (8)
  - Gastrointestinal stoma complication [Recovered/Resolved]
  - Mucosal haemorrhage [Recovered/Resolved]
  - Pain [Recovered/Resolved]
  - Diarrhoea [Recovered/Resolved]
  - Dizziness [Not Recovered/Not Resolved]
  - Cystitis [Recovered/Resolved]
  - Oesophageal candidiasis [Recovered/Resolved]
  - Decreased appetite [Recovered/Resolved]
